FAERS Safety Report 11848719 (Version 17)
Quarter: 2017Q2

REPORT INFORMATION
  Report Type: Report from Study
  Country: IE (occurrence: IE)
  Receive Date: 20151218
  Receipt Date: 20170420
  Transmission Date: 20170829
  Serious: Yes (Other)
  Sender: FDA-Public Use
  Company Number: IE-ROCHE-1671368

PATIENT
  Age: 76 Year
  Sex: Male
  Weight: 67.1 kg

DRUGS (70)
  1. PARACETAMOL [Concomitant]
     Active Substance: ACETAMINOPHEN
     Route: 048
     Dates: start: 20160229, end: 20160827
  2. GALFER [Concomitant]
     Active Substance: IRON
     Dosage: DOSE PER SOURCE 305MG/0.35MG
     Route: 048
     Dates: start: 20161001
  3. CHLORAMBUCIL [Suspect]
     Active Substance: CHLORAMBUCIL
     Dosage: C5D1 - DOSE REDUCTION DUE TO CYTOPENIA IN LAST INFUSION.
     Route: 048
     Dates: start: 20150409, end: 20150409
  4. CHLORAMBUCIL [Suspect]
     Active Substance: CHLORAMBUCIL
     Dosage: C1D15
     Route: 048
     Dates: start: 20141210, end: 20141210
  5. CHLORAMBUCIL [Suspect]
     Active Substance: CHLORAMBUCIL
     Dosage: C5D15, HELD AND REDUCED ON NEXT VISIT DUE TO NEUTROPENIA LOG LINE
     Route: 048
     Dates: start: 20150423, end: 20150423
  6. DOMPERIDONE [Concomitant]
     Active Substance: DOMPERIDONE
     Route: 048
     Dates: start: 20141203, end: 20141209
  7. MAXOLON [Concomitant]
     Active Substance: METOCLOPRAMIDE HYDROCHLORIDE
     Route: 048
     Dates: start: 20141210, end: 20141211
  8. FUROSEMIDE. [Concomitant]
     Active Substance: FUROSEMIDE
     Route: 048
     Dates: start: 20160401
  9. PRADAXA [Concomitant]
     Active Substance: DABIGATRAN ETEXILATE MESYLATE
     Indication: MYOCARDIAL ISCHAEMIA
     Route: 048
     Dates: start: 20141126, end: 20141128
  10. TAZOCIN [Concomitant]
     Active Substance: PIPERACILLIN SODIUM\TAZOBACTAM SODIUM
     Route: 042
     Dates: start: 20150324
  11. CYCLIZINE [Concomitant]
     Active Substance: CYCLIZINE
     Route: 048
     Dates: start: 20150311, end: 20150318
  12. PANTOPRAZOLE [Concomitant]
     Active Substance: PANTOPRAZOLE
     Route: 048
     Dates: start: 20150311, end: 20150312
  13. CODEINE [Concomitant]
     Active Substance: CODEINE
     Route: 048
     Dates: start: 20150324
  14. ORAMORPH [Concomitant]
     Active Substance: MORPHINE SULFATE
     Route: 058
     Dates: start: 20160229
  15. OBINUTUZUMAB [Suspect]
     Active Substance: OBINUTUZUMAB
     Dosage: C5D1
     Route: 042
     Dates: start: 20150409, end: 20150409
  16. ATORVASTATIN [Concomitant]
     Active Substance: ATORVASTATIN
     Route: 065
     Dates: start: 2009
  17. BISOPROLOL [Concomitant]
     Active Substance: BISOPROLOL
     Indication: ATRIAL FIBRILLATION
     Route: 048
     Dates: start: 20090703, end: 20150217
  18. TAZOCIN [Concomitant]
     Active Substance: PIPERACILLIN SODIUM\TAZOBACTAM SODIUM
     Route: 042
     Dates: start: 20150311, end: 20150318
  19. ENSHAKE [Concomitant]
     Route: 048
     Dates: start: 20150314
  20. METHYLPREDNISOLONE. [Concomitant]
     Active Substance: METHYLPREDNISOLONE
     Route: 042
     Dates: start: 20141223, end: 20141223
  21. OBINUTUZUMAB [Suspect]
     Active Substance: OBINUTUZUMAB
     Dosage: C2D1
     Route: 042
     Dates: start: 20141223, end: 20141223
  22. CHLORAMBUCIL [Suspect]
     Active Substance: CHLORAMBUCIL
     Dosage: C4D15
     Route: 048
     Dates: start: 20150304, end: 20150304
  23. CHLORAMBUCIL [Suspect]
     Active Substance: CHLORAMBUCIL
     Dosage: C2D15
     Route: 048
     Dates: start: 20150107, end: 20150107
  24. DEXAMETHASONE. [Concomitant]
     Active Substance: DEXAMETHASONE
     Route: 048
     Dates: start: 20141020, end: 20141023
  25. PRADAXA [Concomitant]
     Active Substance: DABIGATRAN ETEXILATE MESYLATE
     Route: 065
     Dates: start: 201310
  26. ZESTRIL [Concomitant]
     Active Substance: LISINOPRIL
     Indication: MYOCARDIAL ISCHAEMIA
     Route: 065
     Dates: start: 20141117
  27. PARACETAMOL [Concomitant]
     Active Substance: ACETAMINOPHEN
     Dosage: DAY 1 EACH CYCLE
     Route: 048
     Dates: start: 20141126
  28. DIFLAM [Concomitant]
     Dosage: 10-15 ML
     Route: 048
     Dates: start: 20160210
  29. MST (MORPHINE SULFATE) [Concomitant]
     Route: 048
     Dates: start: 20160229
  30. BMX MOUTH SOLUTION (BENADRYL, MAALOX, LIDOCAINE) [Concomitant]
     Indication: PAIN
     Route: 048
  31. TEVANATE [Concomitant]
     Active Substance: ALENDRONIC ACID
     Indication: PROPHYLAXIS
     Route: 048
     Dates: start: 20160710, end: 20160827
  32. OBINUTUZUMAB [Suspect]
     Active Substance: OBINUTUZUMAB
     Indication: CHRONIC LYMPHOCYTIC LEUKAEMIA REFRACTORY
     Dosage: C1D1
     Route: 042
     Dates: start: 20141126, end: 20141126
  33. OBINUTUZUMAB [Suspect]
     Active Substance: OBINUTUZUMAB
     Dosage: C1D8
     Route: 042
     Dates: start: 20141203, end: 20141203
  34. OBINUTUZUMAB [Suspect]
     Active Substance: OBINUTUZUMAB
     Dosage: C1D15
     Route: 042
     Dates: start: 20141210, end: 20141210
  35. OBINUTUZUMAB [Suspect]
     Active Substance: OBINUTUZUMAB
     Dosage: C4D1
     Route: 042
     Dates: start: 20150217, end: 20150217
  36. OBINUTUZUMAB [Suspect]
     Active Substance: OBINUTUZUMAB
     Dosage: C6D1?MOST RECENT DOSE PRIOR TO EVENT ONSET 07/MAY/2015
     Route: 042
     Dates: start: 20150507, end: 20150507
  37. CHLORAMBUCIL [Suspect]
     Active Substance: CHLORAMBUCIL
     Dosage: C3D15
     Route: 048
     Dates: start: 20150204, end: 20150204
  38. DEXAMETHASONE. [Concomitant]
     Active Substance: DEXAMETHASONE
     Dosage: FREQUENCY  -  STAT 12HRS PRE MED
     Route: 042
     Dates: start: 20141125, end: 20141125
  39. LARGACTIL [Concomitant]
     Active Substance: CHLORPROMAZINE
     Route: 048
     Dates: start: 20141210, end: 20150105
  40. ATORVASTATIN [Concomitant]
     Active Substance: ATORVASTATIN
     Indication: MYOCARDIAL ISCHAEMIA
     Dosage: TAKEN AT NIGHT
     Route: 048
     Dates: start: 20141126, end: 20141127
  41. FUROSEMIDE. [Concomitant]
     Active Substance: FUROSEMIDE
     Indication: MYOCARDIAL ISCHAEMIA
     Route: 048
     Dates: start: 20141125, end: 20141128
  42. LISINOPRIL. [Concomitant]
     Active Substance: LISINOPRIL
     Route: 065
     Dates: start: 2009
  43. CYCLIZINE [Concomitant]
     Active Substance: CYCLIZINE
     Route: 048
     Dates: start: 20160331
  44. FLAGYL [Concomitant]
     Active Substance: METRONIDAZOLE\METRONIDAZOLE HYDROCHLORIDE
     Route: 042
     Dates: start: 20150324
  45. DIFLAM [Concomitant]
     Route: 065
     Dates: start: 20160229
  46. OBINUTUZUMAB [Suspect]
     Active Substance: OBINUTUZUMAB
     Dosage: C3D1
     Route: 042
     Dates: start: 20150122, end: 20150122
  47. CHLORAMBUCIL [Suspect]
     Active Substance: CHLORAMBUCIL
     Dosage: C2D1
     Route: 048
     Dates: start: 20141223, end: 20141223
  48. CHLORAMBUCIL [Suspect]
     Active Substance: CHLORAMBUCIL
     Dosage: C3D1
     Route: 048
     Dates: start: 20150122, end: 20150122
  49. ALLOPURINOL. [Concomitant]
     Active Substance: ALLOPURINOL
     Route: 048
     Dates: start: 20141125, end: 20141222
  50. ALDACTONE (UNITED KINGDOM) [Concomitant]
     Indication: MYOCARDIAL ISCHAEMIA
     Route: 048
     Dates: start: 20141117
  51. BISOPROLOL [Concomitant]
     Active Substance: BISOPROLOL
     Route: 048
     Dates: start: 20150217, end: 20150227
  52. CHLORAMBUCIL [Suspect]
     Active Substance: CHLORAMBUCIL
     Indication: CHRONIC LYMPHOCYTIC LEUKAEMIA REFRACTORY
     Dosage: C1D1
     Route: 048
     Dates: start: 20141126, end: 20141126
  53. ALLOPURINOL. [Concomitant]
     Active Substance: ALLOPURINOL
     Route: 065
     Dates: start: 20141125
  54. FLUCONAZOLE. [Concomitant]
     Active Substance: FLUCONAZOLE
     Route: 048
     Dates: start: 20141203, end: 20141209
  55. ATORVASTATIN [Concomitant]
     Active Substance: ATORVASTATIN
     Route: 048
     Dates: start: 20091125, end: 20141125
  56. FUROSEMIDE. [Concomitant]
     Active Substance: FUROSEMIDE
     Indication: PROPHYLAXIS
     Route: 065
     Dates: start: 2009
  57. LISINOPRIL. [Concomitant]
     Active Substance: LISINOPRIL
     Indication: HYPERTENSION
     Route: 048
     Dates: start: 20081120, end: 20150217
  58. PIRITON [Concomitant]
     Active Substance: CHLORPHENIRAMINE MALEATE
     Route: 042
     Dates: start: 20141126, end: 20150121
  59. ORAMORPH [Concomitant]
     Active Substance: MORPHINE SULFATE
     Dosage: 2.5 MG TO 5 MG PER SOURCE
     Route: 048
     Dates: start: 20160210
  60. CHLORAMBUCIL [Suspect]
     Active Substance: CHLORAMBUCIL
     Dosage: C6D1  -  DOSE REDUCTION DUE TO NEUTROPENIA?MOST RECENT DOSE PRIOR TO EVENT ONSET 21/MAY/2015
     Route: 048
     Dates: start: 20150507, end: 20150507
  61. CHLORAMBUCIL [Suspect]
     Active Substance: CHLORAMBUCIL
     Dosage: C4D1
     Route: 048
     Dates: start: 20150217, end: 20150217
  62. PRADAXA [Concomitant]
     Active Substance: DABIGATRAN ETEXILATE MESYLATE
     Route: 048
     Dates: start: 20140305, end: 20141125
  63. PANTOPRAZOLE [Concomitant]
     Active Substance: PANTOPRAZOLE
     Route: 065
     Dates: start: 20150312
  64. CO-AMOXICILLIN [Concomitant]
     Active Substance: AMOXICILLIN\CLAVULANATE POTASSIUM
     Route: 048
     Dates: start: 20150326, end: 20150401
  65. CALCICHEW D3 [Concomitant]
     Active Substance: CALCIUM\CHOLECALCIFEROL
     Route: 048
     Dates: start: 20160710
  66. OBINUTUZUMAB [Suspect]
     Active Substance: OBINUTUZUMAB
     Dosage: LAST DOSE PRIOR TO SAE WAS ON 07/MAY/2015
     Route: 042
     Dates: start: 20141026
  67. CHLORAMBUCIL [Suspect]
     Active Substance: CHLORAMBUCIL
     Dosage: C6D15
     Route: 048
     Dates: start: 20150521, end: 20150521
  68. LISINOPRIL. [Concomitant]
     Active Substance: LISINOPRIL
     Route: 048
     Dates: start: 20160827
  69. EPUTEX [Concomitant]
     Route: 048
     Dates: start: 20150313, end: 20150318
  70. NORMAL SALINE [Concomitant]
     Active Substance: SODIUM CHLORIDE
     Route: 042
     Dates: start: 20150324, end: 20150325

REACTIONS (1)
  - Squamous cell carcinoma [Recovered/Resolved]

NARRATIVE: CASE EVENT DATE: 20150819
